FAERS Safety Report 9530982 (Version 17)
Quarter: 2016Q4

REPORT INFORMATION
  Report Type: Report from Study
  Country: CA (occurrence: CA)
  Receive Date: 20130918
  Receipt Date: 20161202
  Transmission Date: 20170207
  Serious: Yes (Hospitalization, Other)
  Sender: FDA-Public Use
  Company Number: CA-ROCHE-1176282

PATIENT
  Age: 65 Year
  Sex: Male
  Weight: 105 kg

DRUGS (13)
  1. AMLODIPINE [Concomitant]
     Active Substance: AMLODIPINE BESYLATE
  2. METHOTREXATE. [Concomitant]
     Active Substance: METHOTREXATE
  3. ACTEMRA [Suspect]
     Active Substance: TOCILIZUMAB
     Route: 042
     Dates: start: 20140506
  4. CORTISONE [Suspect]
     Active Substance: CORTISONE\HYDROCORTISONE
     Indication: PRODUCT USED FOR UNKNOWN INDICATION
     Route: 065
  5. SULPHASALAZINE [Concomitant]
     Active Substance: SULFASALAZINE
  6. MEDROL [Concomitant]
     Active Substance: METHYLPREDNISOLONE
  7. ACTEMRA [Suspect]
     Active Substance: TOCILIZUMAB
     Indication: RHEUMATOID ARTHRITIS
     Route: 042
     Dates: start: 20121121
  8. CELEBREX [Concomitant]
     Active Substance: CELECOXIB
  9. ACTEMRA [Suspect]
     Active Substance: TOCILIZUMAB
     Route: 042
     Dates: start: 20151001, end: 20160901
  10. PRAVASTATIN. [Concomitant]
     Active Substance: PRAVASTATIN
  11. DEPO-MEDROL [Concomitant]
     Active Substance: METHYLPREDNISOLONE ACETATE
     Route: 030
  12. FOLIC ACID. [Concomitant]
     Active Substance: FOLIC ACID
  13. PANTOLOC [Concomitant]
     Active Substance: PANTOPRAZOLE SODIUM

REACTIONS (21)
  - Gait disturbance [Unknown]
  - Pneumonia [Unknown]
  - Impaired healing [Unknown]
  - Pain [Unknown]
  - Arthralgia [Unknown]
  - Rheumatoid arthritis [Unknown]
  - Aphonia [Unknown]
  - Insomnia [Recovered/Resolved]
  - Rheumatoid arthritis [Unknown]
  - Pharyngitis [Unknown]
  - Musculoskeletal stiffness [Unknown]
  - Clostridium difficile infection [Recovering/Resolving]
  - Arthritis infective [Recovered/Resolved]
  - Speech disorder [Unknown]
  - Hyponatraemia [Unknown]
  - Hypokalaemia [Unknown]
  - Fall [Unknown]
  - Peripheral swelling [Recovering/Resolving]
  - Hip fracture [Unknown]
  - Weight increased [Unknown]
  - Joint swelling [Unknown]

NARRATIVE: CASE EVENT DATE: 20121218
